FAERS Safety Report 12545012 (Version 3)
Quarter: 2016Q3

REPORT INFORMATION
  Report Type: Report from Study
  Country: US (occurrence: US)
  Receive Date: 20160711
  Receipt Date: 20160825
  Transmission Date: 20161109
  Serious: Yes (Hospitalization, Other)
  Sender: FDA-Public Use
  Company Number: US-JNJFOC-20160605053

PATIENT
  Age: 94 Year
  Sex: Female

DRUGS (8)
  1. ELIQUIS [Concomitant]
     Active Substance: APIXABAN
  2. DIGOXIN. [Concomitant]
     Active Substance: DIGOXIN
  3. COREG [Concomitant]
     Active Substance: CARVEDILOL
  4. COUMADIN [Concomitant]
     Active Substance: WARFARIN SODIUM
  5. SYNTHROID [Concomitant]
     Active Substance: LEVOTHYROXINE SODIUM
  6. IMBRUVICA [Suspect]
     Active Substance: IBRUTINIB
     Indication: CHRONIC LYMPHOCYTIC LEUKAEMIA
     Route: 048
     Dates: start: 20160521, end: 20160626
  7. IMBRUVICA [Suspect]
     Active Substance: IBRUTINIB
     Indication: CHRONIC LYMPHOCYTIC LEUKAEMIA
     Route: 048
     Dates: start: 20160709
  8. LASIX [Concomitant]
     Active Substance: FUROSEMIDE

REACTIONS (11)
  - Nausea [Unknown]
  - Peripheral swelling [Unknown]
  - Headache [Unknown]
  - Decreased appetite [Unknown]
  - Alopecia [Unknown]
  - Bradycardia [Unknown]
  - Atrial fibrillation [Recovering/Resolving]
  - Weight decreased [Recovering/Resolving]
  - Diarrhoea [Unknown]
  - Vomiting [Unknown]
  - Presyncope [Unknown]

NARRATIVE: CASE EVENT DATE: 2016
